FAERS Safety Report 9396116 (Version 1)
Quarter: 2013Q3

REPORT INFORMATION
  Report Type: Spontaneous
  Country: US (occurrence: US)
  Receive Date: 20130711
  Receipt Date: 20130711
  Transmission Date: 20140515
  Serious: Yes (Death, Hospitalization)
  Sender: FDA-Public Use
  Company Number: US-PERRIGO-13US006910

PATIENT
  Age: 28 Year
  Sex: Female
  Weight: 70 kg

DRUGS (6)
  1. IBUPROFEN [Suspect]
     Indication: CONTUSION
     Dosage: 800 MG, TID
     Route: 048
  2. IBUPROFEN [Suspect]
     Indication: LIGAMENT SPRAIN
  3. VALDECOXIB [Suspect]
     Indication: PRODUCT USED FOR UNKNOWN INDICATION
     Dosage: 10 MG, QD
     Route: 048
  4. METAXALONE [Suspect]
     Indication: PRODUCT USED FOR UNKNOWN INDICATION
     Dosage: 800 MG, TID
     Route: 048
  5. CYCLOBENZAPRINE [Concomitant]
     Indication: PRODUCT USED FOR UNKNOWN INDICATION
     Dosage: 10 MG, QHS
     Route: 048
  6. METHOCARBAMOL [Suspect]
     Indication: PRODUCT USED FOR UNKNOWN INDICATION
     Dosage: 750 MG, QID
     Route: 048

REACTIONS (20)
  - Cerebral haemorrhage [Fatal]
  - Diabetes mellitus [Fatal]
  - Respiratory failure [Fatal]
  - Cardiomyopathy [Fatal]
  - Hypertension [Fatal]
  - Coma [Unknown]
  - Abdominal pain [Unknown]
  - Vomiting [Unknown]
  - Hyperventilation [Unknown]
  - Palpitations [Unknown]
  - Menorrhagia [Not Recovered/Not Resolved]
  - Gastritis [Unknown]
  - Dizziness [None]
  - Blood urea increased [None]
  - Blood creatinine increased [None]
  - Haematocrit decreased [None]
  - Glomerulonephritis [None]
  - Renal failure [None]
  - Tendonitis [None]
  - Carpal tunnel syndrome [None]
